FAERS Safety Report 10403307 (Version 2)
Quarter: 2014Q3

REPORT INFORMATION
  Report Type: Report from Study
  Country: JP (occurrence: JP)
  Receive Date: 20140822
  Receipt Date: 20140916
  Transmission Date: 20150326
  Serious: Yes (Other)
  Sender: FDA-Public Use
  Company Number: JP-JNJFOC-20140819677

PATIENT
  Age: 69 Year
  Sex: Female
  Weight: 50 kg

DRUGS (10)
  1. PEGINTRON [Suspect]
     Active Substance: PEGINTERFERON ALFA-2B
     Indication: CHRONIC HEPATITIS C
     Route: 058
     Dates: start: 20140508
  2. PROMAC (POLAPREZINC) [Concomitant]
     Active Substance: POLAPREZINC
     Route: 048
  3. SOVRIAD [Suspect]
     Active Substance: SIMEPREVIR
     Indication: CHRONIC HEPATITIS C
     Route: 048
     Dates: start: 20140410, end: 20140702
  4. PEGINTRON [Suspect]
     Active Substance: PEGINTERFERON ALFA-2B
     Indication: CHRONIC HEPATITIS C
     Route: 058
     Dates: start: 20140410, end: 20140502
  5. VOLTAREN [Concomitant]
     Active Substance: DICLOFENAC SODIUM
     Indication: PROPHYLAXIS
     Route: 048
     Dates: start: 20140410
  6. RIBAVIRIN. [Concomitant]
     Active Substance: RIBAVIRIN
     Indication: CHRONIC HEPATITIS C
     Route: 048
     Dates: start: 20140410
  7. PARIET [Concomitant]
     Active Substance: RABEPRAZOLE SODIUM
     Indication: PROPHYLAXIS
     Route: 048
     Dates: start: 20140410
  8. ROHYPNOL [Concomitant]
     Active Substance: FLUNITRAZEPAM
     Route: 048
  9. EQUA (VILDAGLIPTIN) [Concomitant]
     Active Substance: VILDAGLIPTIN
     Route: 048
  10. DOGMATYL [Concomitant]
     Active Substance: SULPIRIDE
     Indication: PROPHYLAXIS
     Route: 048
     Dates: start: 20140410

REACTIONS (4)
  - Platelet count decreased [Not Recovered/Not Resolved]
  - White blood cell count decreased [Not Recovered/Not Resolved]
  - Haemolytic anaemia [Not Recovered/Not Resolved]
  - Neutrophil count decreased [Recovered/Resolved]

NARRATIVE: CASE EVENT DATE: 20140417
